FAERS Safety Report 20916785 (Version 1)
Quarter: 2022Q2

REPORT INFORMATION
  Report Type: Report from Study
  Country: CA (occurrence: CA)
  Receive Date: 20220605
  Receipt Date: 20220605
  Transmission Date: 20220721
  Serious: Yes (Other)
  Sender: FDA-Public Use
  Company Number: CA-ABBVIE-22K-028-4420917-00

PATIENT
  Sex: Female

DRUGS (4)
  1. HUMIRA [Suspect]
     Active Substance: ADALIMUMAB
     Indication: Colitis ulcerative
     Route: 058
     Dates: start: 20190917, end: 202110
  2. HUMIRA [Suspect]
     Active Substance: ADALIMUMAB
     Route: 058
     Dates: start: 2021
  3. COVID-19 VACCINE [Concomitant]
     Indication: COVID-19 immunisation
  4. COVID-19 VACCINE [Concomitant]

REACTIONS (3)
  - Thyroid disorder [Unknown]
  - Pain [Recovering/Resolving]
  - Unevaluable event [Recovering/Resolving]

NARRATIVE: CASE EVENT DATE: 20210101
